FAERS Safety Report 19942761 (Version 1)
Quarter: 2021Q4

REPORT INFORMATION
  Report Type: Spontaneous
  Country: US (occurrence: US)
  Receive Date: 20211008
  Receipt Date: 20211008
  Transmission Date: 20220304
  Serious: Yes (Other)
  Sender: FDA-Public Use
  Company Number: None

PATIENT
  Age: 64 Year
  Sex: Male
  Weight: 84.24 kg

DRUGS (4)
  1. FENTANYL [Suspect]
     Active Substance: FENTANYL
     Dosage: OTHER FREQUENCY:ONE FOR 72HRS;
     Route: 062
  2. DOXAZOSIN [Concomitant]
     Active Substance: DOXAZOSIN MESYLATE
  3. MORPHINE [Concomitant]
     Active Substance: MORPHINE
  4. OLANZAPINE [Concomitant]
     Active Substance: OLANZAPINE

REACTIONS (11)
  - Agitation [None]
  - Aggression [None]
  - Respiratory rate decreased [None]
  - Apnoea [None]
  - Restlessness [None]
  - Pain [None]
  - Stress [None]
  - Seizure [None]
  - Vomiting [None]
  - Unresponsive to stimuli [None]
  - Hypotension [None]

NARRATIVE: CASE EVENT DATE: 20210426
